FAERS Safety Report 18131359 (Version 1)
Quarter: 2020Q3

REPORT INFORMATION
  Report Type: Spontaneous
  Country: IR (occurrence: IR)
  Receive Date: 20200810
  Receipt Date: 20200810
  Transmission Date: 20201103
  Serious: Yes (Hospitalization, Other)
  Sender: FDA-Public Use
  Company Number: IR-CASPER PHARMA LLC-2020CAS000393

PATIENT
  Age: 23 Year
  Sex: Male

DRUGS (2)
  1. PENICILLIN G BENZATHINE [Suspect]
     Active Substance: PENICILLIN G BENZATHINE
     Indication: PRODUCT USED FOR UNKNOWN INDICATION
     Dosage: 6.3.3 (600,000 PNC G BENZATHINE, 300,000 PNC G PROCAINE, 300,000 PNC G POTASSIUM)
     Route: 030
  2. CO?AMOXICLAV [Concomitant]
     Indication: PRODUCT USED FOR UNKNOWN INDICATION
     Dosage: UNK
     Route: 048

REACTIONS (1)
  - Embolia cutis medicamentosa [Recovered/Resolved]
